FAERS Safety Report 9491352 (Version 1)
Quarter: 2013Q3

REPORT INFORMATION
  Report Type: Spontaneous
  Country: US (occurrence: US)
  Receive Date: 20130830
  Receipt Date: 20130830
  Transmission Date: 20140515
  Serious: Yes (Death, Other)
  Sender: FDA-Public Use
  Company Number: US-ELI_LILLY_AND_COMPANY-US201308006724

PATIENT
  Age: 28 Year
  Sex: Female

DRUGS (2)
  1. FLUOXETINE HYDROCHLORIDE [Suspect]
     Dosage: 1 DF, UNKNOWN
     Route: 065
  2. OPANA [Suspect]
     Dosage: 1 DF, UNKNOWN
     Route: 065

REACTIONS (3)
  - Respiratory failure [Fatal]
  - Toxicity to various agents [Fatal]
  - Overdose [Not Recovered/Not Resolved]
